FAERS Safety Report 26167385 (Version 1)
Quarter: 2025Q4

REPORT INFORMATION
  Report Type: Spontaneous
  Country: JP (occurrence: JP)
  Receive Date: 20251217
  Receipt Date: 20251217
  Transmission Date: 20260118
  Serious: Yes (Other)
  Sender: MERCK SHARP & DOHME LLC
  Company Number: JP-009507513-2302824

PATIENT
  Age: 8 Decade
  Sex: Male

DRUGS (2)
  1. KEYTRUDA [Suspect]
     Active Substance: PEMBROLIZUMAB
     Indication: Transitional cell carcinoma
     Route: 041
     Dates: start: 20250609
  2. PADCEV [Suspect]
     Active Substance: ENFORTUMAB VEDOTIN-EJFV
     Indication: Transitional cell carcinoma
     Dosage: TIME INTERVAL: CYCLICAL: DAY1 DAY8 OF EACH CYCLE
     Route: 041
     Dates: start: 20250609

REACTIONS (2)
  - Tumour pseudoprogression [Unknown]
  - Inflammatory pseudotumour [Recovered/Resolved]

NARRATIVE: CASE EVENT DATE: 20250101
